FAERS Safety Report 17755503 (Version 1)
Quarter: 2020Q2

REPORT INFORMATION
  Report Type: Spontaneous
  Country: US (occurrence: US)
  Receive Date: 20200507
  Receipt Date: 20200507
  Transmission Date: 20200714
  Serious: No
  Sender: FDA-Public Use
  Company Number: NVSC2020US123572

PATIENT
  Sex: Female
  Weight: 94.35 kg

DRUGS (1)
  1. AFINITOR [Suspect]
     Active Substance: EVEROLIMUS
     Indication: OESOPHAGEAL CARCINOMA
     Dosage: 10 MG, QD
     Route: 048
     Dates: start: 20200408, end: 20200505

REACTIONS (1)
  - Headache [Unknown]
